FAERS Safety Report 24036226 (Version 1)
Quarter: 2024Q3

REPORT INFORMATION
  Report Type: Spontaneous
  Country: US (occurrence: US)
  Receive Date: 20240701
  Receipt Date: 20240701
  Transmission Date: 20241017
  Serious: Yes (Disabling)
  Sender: NOVO NORDISK
  Company Number: US-NOVOPROD-1172464

PATIENT
  Age: 78 Year

DRUGS (1)
  1. RYBELSUS [Suspect]
     Active Substance: SEMAGLUTIDE
     Indication: Product used for unknown indication
     Dosage: UNK
     Route: 058

REACTIONS (2)
  - Gait inability [Unknown]
  - Fatigue [Unknown]
